FAERS Safety Report 21558938 (Version 1)
Quarter: 2022Q4

REPORT INFORMATION
  Report Type: Spontaneous
  Country: US (occurrence: US)
  Receive Date: 20221107
  Receipt Date: 20221107
  Transmission Date: 20230113
  Serious: No
  Sender: FDA-Public Use
  Company Number: US-PFIZER INC-202201273279

PATIENT
  Age: 74 Year
  Sex: Female
  Weight: 55.34 kg

DRUGS (2)
  1. ESTRING [Suspect]
     Active Substance: ESTRADIOL
     Indication: Hysterotomy
     Dosage: UNK
  2. ESTRING [Suspect]
     Active Substance: ESTRADIOL
     Indication: Hormone level abnormal

REACTIONS (3)
  - Vaginal discharge [Unknown]
  - Off label use [Unknown]
  - Drug effective for unapproved indication [Unknown]
